FAERS Safety Report 12054347 (Version 2)
Quarter: 2016Q1

REPORT INFORMATION
  Report Type: Spontaneous
  Country: US (occurrence: US)
  Receive Date: 20160209
  Receipt Date: 20160315
  Transmission Date: 20160526
  Serious: Yes (Other)
  Sender: FDA-Public Use
  Company Number: US-BEH-2016058450

PATIENT
  Sex: Female
  Weight: 60 kg

DRUGS (16)
  1. ASPIRIN. [Concomitant]
     Active Substance: ASPIRIN
  2. ALLEGRA [Concomitant]
     Active Substance: FEXOFENADINE HYDROCHLORIDE
  3. MOMETASONE [Concomitant]
     Active Substance: MOMETASONE
  4. HIZENTRA [Suspect]
     Active Substance: HUMAN IMMUNOGLOBULIN G
     Indication: IMMUNODEFICIENCY COMMON VARIABLE
     Route: 058
  5. VITAMIN K [Concomitant]
     Active Substance: PHYTONADIONE
  6. ATROVENT [Concomitant]
     Active Substance: IPRATROPIUM BROMIDE
  7. OMEPRAZOLE. [Concomitant]
     Active Substance: OMEPRAZOLE
  8. KEFLEX [Concomitant]
     Active Substance: CEPHALEXIN
  9. IBUPROFEN. [Concomitant]
     Active Substance: IBUPROFEN
  10. LIDOCAINE/PRILOCAINE [Concomitant]
  11. NORCO [Concomitant]
     Active Substance: ACETAMINOPHEN\HYDROCODONE BITARTRATE
  12. EPIPEN [Concomitant]
     Active Substance: EPINEPHRINE
  13. NAPROSYN [Concomitant]
     Active Substance: NAPROXEN
  14. LEVAQUIN [Concomitant]
     Active Substance: LEVOFLOXACIN
  15. DIPHENHYDRAMINE. [Concomitant]
     Active Substance: DIPHENHYDRAMINE
  16. FLOVENT [Concomitant]
     Active Substance: FLUTICASONE PROPIONATE

REACTIONS (1)
  - Respiratory tract infection fungal [Unknown]
